FAERS Safety Report 7230137 (Version 2)
Quarter: 2013Q1

REPORT INFORMATION
  Report Type: Spontaneous
  Country: AU (occurrence: AU)
  Receive Date: 20091224
  Receipt Date: 20130124
  Transmission Date: 20140127
  Serious: No
  Sender: FDA-Public Use
  Company Number: PHHY2009AU55273

PATIENT
  Sex: Female

DRUGS (3)
  1. TASIGNA [Suspect]
     Indication: CHRONIC MYELOID LEUKAEMIA
     Route: 048
     Dates: start: 20050101
  2. TASIGNA [Suspect]
     Dosage: 600 MG, UNK
     Route: 048
     Dates: start: 200904, end: 20130107
  3. WARFARIN [Concomitant]
     Indication: CARDIAC VALVE DISEASE
     Dosage: UNK

REACTIONS (1)
  - Conjunctival haemorrhage [Recovered/Resolved]
